FAERS Safety Report 8620331-9 (Version None)
Quarter: 2012Q3

REPORT INFORMATION
  Report Type: 
  Country: None (occurrence: None)
  Receive Date: 20120824
  Receipt Date: 20120821
  Transmission Date: 20120928
  Serious: Yes (Hospitalization)
  Sender: FDA-Public Use
  Company Number: US-BAYER-2012-087213

PATIENT
  Age: 37 Year
  Sex: Female

DRUGS (1)
  1. BETASERON [Suspect]
     Indication: MULTIPLE SCLEROSIS
     Dosage: 0.3 MG, QOD
     Route: 058

REACTIONS (7)
  - SWOLLEN TONGUE [None]
  - SCAB [None]
  - PRURITUS GENERALISED [None]
  - HYPOAESTHESIA ORAL [None]
  - LIP SWELLING [None]
  - PHARYNGEAL OEDEMA [None]
  - PHARYNGEAL HYPOAESTHESIA [None]
